FAERS Safety Report 8555272-9 (Version None)
Quarter: 2012Q3

REPORT INFORMATION
  Report Type: 
  Country: None (occurrence: None)
  Receive Date: 20120731
  Receipt Date: 20120508
  Transmission Date: 20120928
  Serious: No
  Sender: FDA-Public Use
  Company Number: US-ASTRAZENECA-2012SE29710

PATIENT
  Age: 58 Year
  Sex: Female
  Weight: 52.2 kg

DRUGS (4)
  1. SEROQUEL [Suspect]
     Indication: DRUG WITHDRAWAL SYNDROME
     Route: 048
     Dates: start: 20000101
  2. SEROQUEL [Suspect]
     Dosage: GENERIC FORM
     Route: 048
  3. KLONOPIN [Concomitant]
     Indication: ANXIETY
     Dates: start: 20000101
  4. KLONOPIN [Concomitant]
     Indication: PANIC ATTACK
     Dates: start: 20000101

REACTIONS (10)
  - THERAPEUTIC RESPONSE UNEXPECTED [None]
  - MALAISE [None]
  - DEPERSONALISATION [None]
  - INTENTIONAL DRUG MISUSE [None]
  - DRUG INEFFECTIVE FOR UNAPPROVED INDICATION [None]
  - PANIC ATTACK [None]
  - DRY MOUTH [None]
  - ANXIETY [None]
  - ABDOMINAL DISCOMFORT [None]
  - OFF LABEL USE [None]
